FAERS Safety Report 20946425 (Version 1)
Quarter: 2022Q2

REPORT INFORMATION
  Report Type: Spontaneous
  Country: US (occurrence: None)
  Receive Date: 20220610
  Receipt Date: 20220610
  Transmission Date: 20220721
  Serious: No
  Sender: FDA-Public Use
  Company Number: None

PATIENT
  Sex: Male

DRUGS (1)
  1. HUMIRA [Suspect]
     Active Substance: ADALIMUMAB
     Indication: Inflammatory bowel disease
     Dosage: 40MG/0.4ML EVERY 14 DAYS SUBQ?
     Route: 058
     Dates: start: 20210922

REACTIONS (3)
  - Condition aggravated [None]
  - Pain [None]
  - Drug ineffective [None]
